FAERS Safety Report 19771315 (Version 7)
Quarter: 2022Q1

REPORT INFORMATION
  Report Type: Report from Study
  Country: AU (occurrence: None)
  Receive Date: 20210901
  Receipt Date: 20220301
  Transmission Date: 20220423
  Serious: Yes (Hospitalization)
  Sender: FDA-Public Use
  Company Number: AU-EISAI MEDICAL RESEARCH-EC-2021-095678

PATIENT
  Age: 73 Year
  Sex: Female
  Weight: 81.3 kg

DRUGS (17)
  1. LENVATINIB [Suspect]
     Active Substance: LENVATINIB
     Indication: Renal cell carcinoma
     Route: 048
     Dates: start: 20210625, end: 20210630
  2. LENVATINIB [Suspect]
     Active Substance: LENVATINIB
     Dosage: STARTING DOSE AT 14 MG, QD, FLUCTUATED DOSAGE
     Route: 048
     Dates: start: 20210721
  3. PEMBROLIZUMAB [Suspect]
     Active Substance: PEMBROLIZUMAB
     Indication: Renal cell carcinoma
     Route: 041
     Dates: start: 20210625, end: 20210625
  4. PEMBROLIZUMAB [Suspect]
     Active Substance: PEMBROLIZUMAB
     Route: 041
     Dates: start: 20210812
  5. LEVOTHYROXINE SODIUM [Concomitant]
     Active Substance: LEVOTHYROXINE SODIUM
     Dates: start: 199206, end: 20210630
  6. NEXIUM [Concomitant]
     Active Substance: ESOMEPRAZOLE MAGNESIUM
     Dates: start: 199206
  7. MAGNESIA SAN PELLEGRINO [Concomitant]
     Dates: start: 201606, end: 20210825
  8. CROSUVO [Concomitant]
     Dates: start: 202006
  9. VASOCARDOL [Concomitant]
     Dates: start: 202101, end: 20210702
  10. ONDANSETRON [Concomitant]
     Active Substance: ONDANSETRON
     Dosage: WAFER
     Dates: start: 20210610
  11. AMOXICILLIN\CLAVULANATE POTASSIUM [Concomitant]
     Active Substance: AMOXICILLIN\CLAVULANATE POTASSIUM
     Dates: start: 20210628, end: 20210707
  12. NYSTATIN [Concomitant]
     Active Substance: NYSTATIN
     Dates: start: 20210628, end: 20210701
  13. METHYLDOPA [Concomitant]
     Active Substance: METHYLDOPA
     Dates: start: 201706, end: 20210702
  14. MELATONIN [Concomitant]
     Active Substance: MELATONIN
     Dates: start: 20170701, end: 20210630
  15. DESVEN [Concomitant]
     Dates: start: 201906
  16. LORAZEPAM [Concomitant]
     Active Substance: LORAZEPAM
     Dates: start: 20210625, end: 20210625
  17. DIAZEPAM [Concomitant]
     Active Substance: DIAZEPAM
     Dates: start: 20210701, end: 20210701

REACTIONS (1)
  - Hypertension [Recovered/Resolved]

NARRATIVE: CASE EVENT DATE: 20210701
